FAERS Safety Report 8522672-2 (Version None)
Quarter: 2012Q3

REPORT INFORMATION
  Report Type: 
  Country: None (occurrence: None)
  Receive Date: 20120719
  Receipt Date: 20110913
  Transmission Date: 20120928
  Serious: Yes (Other)
  Sender: FDA-Public Use
  Company Number: US-GLAXOSMITHKLINE-A0944467A

PATIENT
  Age: 15 Year
  Sex: Female
  Weight: 73.2 kg

DRUGS (6)
  1. PHENERGAN HCL [Concomitant]
     Dosage: 25MG AS REQUIRED
     Dates: start: 20110919
  2. AMOXICILLIN [Concomitant]
     Dosage: 1500MG UNKNOWN
     Dates: start: 20110919, end: 20110928
  3. ACETAMINOPHEN [Concomitant]
     Dosage: 2000MG UNKNOWN
     Route: 065
     Dates: start: 20110919
  4. FLAGYL [Concomitant]
     Dosage: 1000MG UNKNOWN
     Route: 065
     Dates: start: 20110907, end: 20110913
  5. LAMICTAL [Suspect]
     Indication: BIPOLAR DISORDER
     Dosage: 400MG TWICE PER DAY
     Route: 048
     Dates: start: 20110102, end: 20110913
  6. ABILIFY [Concomitant]
     Dosage: 30MG UNKNOWN
     Route: 048
     Dates: start: 20110102, end: 20110913

REACTIONS (3)
  - PREMATURE BABY [None]
  - MATERNAL EXPOSURE DURING PREGNANCY [None]
  - LIVE BIRTH [None]
